FAERS Safety Report 10084475 (Version 2)
Quarter: 2014Q2

REPORT INFORMATION
  Report Type: Spontaneous
  Country: US (occurrence: US)
  Receive Date: 20140417
  Receipt Date: 20140627
  Transmission Date: 20141212
  Serious: No
  Sender: FDA-Public Use
  Company Number: US-009507513-1403USA013637

PATIENT
  Age: 70 Year
  Sex: Female

DRUGS (1)
  1. OXYTROL FOR WOMEN [Suspect]
     Indication: HYPERTONIC BLADDER
     Dosage: UNK, UNKNOWN
     Route: 062
     Dates: start: 2013

REACTIONS (5)
  - Application site papules [Unknown]
  - Application site erythema [Unknown]
  - Application site pruritus [Unknown]
  - Drug administered at inappropriate site [Unknown]
  - Drug ineffective [Unknown]
